APPROVED DRUG PRODUCT: AVMAPKI FAKZYNJA CO-PACK (COPACKAGED)
Active Ingredient: AVUTOMETINIB POTASSIUM; DEFACTINIB HYDROCHLORIDE
Strength: EQ 0.8MG BASE;EQ 200MG BASE
Dosage Form/Route: CAPSULE, TABLET;ORAL
Application: N219616 | Product #001
Applicant: VERASTEM INC
Approved: May 8, 2025 | RLD: Yes | RS: Yes | Type: RX

PATENTS:
Patent 11873296 | Expires: Dec 29, 2042
Patent 11517573 | Expires: Sep 11, 2040
Patent 11400090 | Expires: Oct 29, 2038
Patent 11517573 | Expires: Sep 11, 2040
Patent 8247411 | Expires: Apr 17, 2028
Patent 7897792 | Expires: Feb 9, 2027
Patent 12509450 | Expires: Dec 29, 2042
Patent 7928109 | Expires: Aug 21, 2029

EXCLUSIVITY:
Code: NCE | Date: May 8, 2030